FAERS Safety Report 15227339 (Version 2)
Quarter: 2018Q3

REPORT INFORMATION
  Report Type: Spontaneous
  Country: US (occurrence: US)
  Receive Date: 20180801
  Receipt Date: 20180904
  Transmission Date: 20181010
  Serious: Yes (Hospitalization, Other)
  Sender: FDA-Public Use
  Company Number: US-GILEAD-2018-0351440

PATIENT
  Sex: Male

DRUGS (1)
  1. TYBOST [Suspect]
     Active Substance: COBICISTAT
     Indication: PRODUCT USED FOR UNKNOWN INDICATION
     Route: 048

REACTIONS (2)
  - Limb operation [Unknown]
  - Dysphagia [Not Recovered/Not Resolved]
